FAERS Safety Report 8320385-3 (Version None)
Quarter: 2012Q2

REPORT INFORMATION
  Report Type: 
  Country: None (occurrence: None)
  Receive Date: 20120426
  Receipt Date: 20120426
  Transmission Date: 20120825
  Serious: Yes (Other)
  Sender: FDA-Public Use
  Company Number: None

PATIENT
  Age: 66 Year
  Sex: Female
  Weight: 54.4316 kg

DRUGS (2)
  1. AVASTIN [Suspect]
     Indication: LUNG NEOPLASM MALIGNANT
     Dosage: AVASTIN 1 DOSE A WK IV 041
     Route: 042
     Dates: start: 20110101
  2. AVASTIN [Suspect]
     Indication: LUNG NEOPLASM MALIGNANT
     Dosage: AVASTIN 1 DOSE A WK IV 041
     Route: 042
     Dates: start: 20110401

REACTIONS (3)
  - LUNG CANCER METASTATIC [None]
  - NEOPLASM PROGRESSION [None]
  - PRODUCT COUNTERFEIT [None]
